FAERS Safety Report 14713113 (Version 3)
Quarter: 2018Q2

REPORT INFORMATION
  Report Type: Spontaneous
  Country: US (occurrence: US)
  Receive Date: 20180404
  Receipt Date: 20180629
  Transmission Date: 20180711
  Serious: No
  Sender: FDA-Public Use
  Company Number: US-PFIZER INC-2018133692

PATIENT
  Age: 53 Year
  Sex: Male
  Weight: 82 kg

DRUGS (3)
  1. BOSULIF [Suspect]
     Active Substance: BOSUTINIB MONOHYDRATE
     Dosage: 400 MG, 1X/DAY
     Dates: start: 201507
  2. BOSULIF [Suspect]
     Active Substance: BOSUTINIB MONOHYDRATE
     Indication: CHRONIC MYELOID LEUKAEMIA
     Dosage: 500 MG, UNK
  3. BOSULIF [Suspect]
     Active Substance: BOSUTINIB MONOHYDRATE
     Dosage: 400 MG, 1X/DAY (100MG 4 TABLET BY MOUTH ONCE A DAY)
     Route: 048

REACTIONS (14)
  - Fear [Unknown]
  - Limb injury [Recovering/Resolving]
  - Diarrhoea [Unknown]
  - Abdominal discomfort [Unknown]
  - Fall [Recovering/Resolving]
  - Loss of personal independence in daily activities [Unknown]
  - Asthenia [Not Recovered/Not Resolved]
  - Memory impairment [Unknown]
  - Communication disorder [Unknown]
  - Blood creatinine increased [Not Recovered/Not Resolved]
  - Cognitive disorder [Unknown]
  - Apathy [Unknown]
  - Anxiety [Unknown]
  - Muscle disorder [Not Recovered/Not Resolved]

NARRATIVE: CASE EVENT DATE: 201508
